FAERS Safety Report 6965869-5 (Version None)
Quarter: 2010Q3

REPORT INFORMATION
  Report Type: 
  Country: None (occurrence: None)
  Receive Date: 20100903
  Receipt Date: 20100826
  Transmission Date: 20110219
  Serious: Yes (Hospitalization, Disabling)
  Sender: FDA-Public Use
  Company Number: US-US-EMD SERONO, INC.-230177J10USA

PATIENT
  Sex: Female

DRUGS (3)
  1. REBIF [Suspect]
     Indication: MULTIPLE SCLEROSIS
     Route: 058
     Dates: start: 20030925, end: 20100701
  2. REBIF [Suspect]
     Route: 058
     Dates: start: 20100801
  3. UNSPECIFIED DIABETIC MEDICATION [Concomitant]
     Indication: DIABETES MELLITUS
     Route: 048
     Dates: end: 20091201

REACTIONS (12)
  - ARTHROPATHY [None]
  - BURSITIS [None]
  - CONFUSIONAL STATE [None]
  - COUGH [None]
  - DIABETIC COMPLICATION [None]
  - INJECTION SITE ERYTHEMA [None]
  - MULTIPLE SCLEROSIS RELAPSE [None]
  - MUSCLE SPASMS [None]
  - OEDEMA [None]
  - PNEUMONIA [None]
  - SCIATICA [None]
  - URINARY TRACT INFECTION [None]
